FAERS Safety Report 17427245 (Version 1)
Quarter: 2020Q1

REPORT INFORMATION
  Report Type: Spontaneous
  Country: US (occurrence: US)
  Receive Date: 20200218
  Receipt Date: 20200218
  Transmission Date: 20200409
  Serious: No
  Sender: FDA-Public Use
  Company Number: US-ALVOGEN-2019-ALVOGEN-100552

PATIENT
  Age: 65 Year
  Sex: Female
  Weight: 43.36 kg

DRUGS (1)
  1. OXYCODONE [Suspect]
     Active Substance: OXYCODONE
     Indication: SIALOADENITIS
     Dates: start: 20190307

REACTIONS (1)
  - Feeling abnormal [Recovered/Resolved]
